FAERS Safety Report 15138015 (Version 3)
Quarter: 2019Q4

REPORT INFORMATION
  Report Type: Report from Study
  Country: FR (occurrence: FR)
  Receive Date: 20180712
  Receipt Date: 20191002
  Transmission Date: 20200122
  Serious: Yes (Hospitalization)
  Sender: FDA-Public Use
  Company Number: FR-ROCHE-1971156

PATIENT
  Age: 56 Year
  Sex: Female
  Weight: 55 kg

DRUGS (20)
  1. NEULASTA [Concomitant]
     Active Substance: PEGFILGRASTIM
  2. PRAZEPAM [Concomitant]
     Active Substance: PRAZEPAM
  3. BENDAMUSTINE [Concomitant]
     Active Substance: BENDAMUSTINE
     Route: 065
     Dates: start: 20171019, end: 20171025
  4. METHYLPREDNISOLONE. [Concomitant]
     Active Substance: METHYLPREDNISOLONE
  5. CYTARABINE. [Concomitant]
     Active Substance: CYTARABINE
     Route: 065
     Dates: start: 20170614, end: 20170902
  6. FUNGIZONE [Concomitant]
     Active Substance: AMPHOTERICIN B
  7. DEXAMETHASONE. [Concomitant]
     Active Substance: DEXAMETHASONE
     Route: 065
     Dates: start: 20170614, end: 20170902
  8. OXALIPLATIN. [Concomitant]
     Active Substance: OXALIPLATIN
     Route: 065
     Dates: start: 20170614, end: 20170902
  9. CHLORHEXIDINE [Concomitant]
     Active Substance: CHLORHEXIDINE
  10. ETOPOSIDE. [Concomitant]
     Active Substance: ETOPOSIDE
     Route: 065
     Dates: start: 20171019, end: 20171025
  11. BACTRIM [Concomitant]
     Active Substance: SULFAMETHOXAZOLE\TRIMETHOPRIM
  12. MELPHALAN. [Concomitant]
     Active Substance: MELPHALAN
     Route: 065
     Dates: start: 20171019, end: 20171025
  13. PARACETAMOL [Concomitant]
     Active Substance: ACETAMINOPHEN
  14. SODIUM BICARBONATE. [Concomitant]
     Active Substance: SODIUM BICARBONATE
  15. CYTARABINE. [Concomitant]
     Active Substance: CYTARABINE
     Route: 065
     Dates: start: 20171019, end: 20171025
  16. OBINUTUZUMAB. [Suspect]
     Active Substance: OBINUTUZUMAB
     Indication: MANTLE CELL LYMPHOMA
     Dosage: DATE OF MOST RECENT DOSE PRIOR TO SERIOUS ADVERSE EVENT (SAE) 05/JUL/2017, 18/FEB/2018.
     Route: 042
     Dates: start: 20170614
  17. VOGALENE [Concomitant]
     Active Substance: METOPIMAZINE
  18. HYDROCHLOROTHIAZIDE. [Concomitant]
     Active Substance: HYDROCHLOROTHIAZIDE
  19. CHIBRO CADRON [Concomitant]
     Active Substance: DEXAMETHASONE SODIUM PHOSPHATE\NEOMYCIN SULFATE
  20. MIANSERINE [MIANSERIN] [Concomitant]
     Active Substance: MIANSERIN HYDROCHLORIDE

REACTIONS (3)
  - General physical health deterioration [Recovered/Resolved]
  - Clostridium difficile colitis [Recovered/Resolved]
  - Pyrexia [Recovered/Resolved]

NARRATIVE: CASE EVENT DATE: 20170718
